FAERS Safety Report 21984991 (Version 1)
Quarter: 2023Q1

REPORT INFORMATION
  Report Type: Spontaneous
  Country: GB (occurrence: GB)
  Receive Date: 20230213
  Receipt Date: 20230213
  Transmission Date: 20230417
  Serious: Yes (Other)
  Sender: FDA-Public Use
  Company Number: None

PATIENT
  Age: 76 Year
  Sex: Female
  Weight: 56 kg

DRUGS (16)
  1. ATORVASTATIN [Suspect]
     Active Substance: ATORVASTATIN
     Indication: Product used for unknown indication
     Dates: start: 20221125
  2. ACETYLCYSTEINE [Concomitant]
     Active Substance: ACETYLCYSTEINE
     Dates: start: 20220722
  3. ADCAL [Concomitant]
     Dates: start: 20221101
  4. ALENDRONIC ACID [Concomitant]
     Active Substance: ALENDRONIC ACID
     Dosage: SWALLOW WHOLE WITH A FULL GLASS
     Dates: start: 20221101
  5. DOXYCYCLINE [Concomitant]
     Active Substance: DOXYCYCLINE
     Dosage: AS PER OPTHALMOLOGY
     Dates: start: 20220617
  6. HYALURONATE SODIUM [Concomitant]
     Active Substance: HYALURONATE SODIUM
     Dosage: APPLY HOURLY OR AS OFTEN A NECESSARY TO BOTH EYE
     Dates: start: 20220607
  7. CYCLOSPORINE [Concomitant]
     Active Substance: CYCLOSPORINE
     Dosage: AS DIRECTED
     Dates: start: 20220607
  8. LANSOPRAZOLE [Concomitant]
     Active Substance: LANSOPRAZOLE
     Dates: start: 20221101
  9. LISINOPRIL [Concomitant]
     Active Substance: LISINOPRIL
     Dates: start: 20220916
  10. MYCOPHENOLATE MOFETIL [Concomitant]
     Active Substance: MYCOPHENOLATE MOFETIL
     Dates: start: 20220405
  11. PREDNISOLONE SODIUM PHOSPHATE [Concomitant]
     Active Substance: PREDNISOLONE SODIUM PHOSPHATE
     Dates: start: 20220923, end: 20230110
  12. HYDROCORTISONE [Concomitant]
     Active Substance: HYDROCORTISONE
     Dates: start: 20221114
  13. TIMOLOL [Concomitant]
     Active Substance: TIMOLOL
     Dates: start: 20221205
  14. VALACYCLOVIR HYDROCHLORIDE [Concomitant]
     Active Substance: VALACYCLOVIR HYDROCHLORIDE
     Dates: start: 20220512
  15. CARBOMER [Concomitant]
     Active Substance: CARBOMER
     Dosage: HOURLY
     Dates: start: 20220607
  16. TIMOLOL [Concomitant]
     Active Substance: TIMOLOL
     Dates: start: 20221114, end: 20221214

REACTIONS (2)
  - Deafness [Unknown]
  - Rash pruritic [Unknown]
